FAERS Safety Report 6356164-6 (Version None)
Quarter: 2009Q3

REPORT INFORMATION
  Report Type: 
  Country: None (occurrence: None)
  Receive Date: 20090915
  Receipt Date: 20090910
  Transmission Date: 20100115
  Serious: Yes (Hospitalization, Other)
  Sender: FDA-Public Use
  Company Number: GB-BRISTOL-MYERS SQUIBB COMPANY-14775720

PATIENT
  Age: 21 Year
  Sex: Male

DRUGS (9)
  1. APROVEL [Suspect]
     Indication: HYPERTENSION
  2. APROVEL [Suspect]
     Indication: PROPHYLAXIS
  3. ASPIRIN [Concomitant]
  4. FINASTERIDE [Concomitant]
  5. ALFUZOSIN HCL [Concomitant]
  6. SIMVASTATIN [Concomitant]
  7. BECLOMETASONE [Concomitant]
  8. SENNA [Concomitant]
  9. OLANZAPINE [Concomitant]

REACTIONS (1)
  - PSYCHOTIC DISORDER [None]
